FAERS Safety Report 17250353 (Version 22)
Quarter: 2025Q2

REPORT INFORMATION
  Report Type: Report from Study
  Country: US (occurrence: US)
  Receive Date: 20200109
  Receipt Date: 20250624
  Transmission Date: 20250717
  Serious: Yes (Other)
  Sender: TAKEDA
  Company Number: US-SHIRE-US202000365

PATIENT
  Sex: Female
  Weight: 80 kg

DRUGS (57)
  1. HUMAN IMMUNOGLOBULIN G [Suspect]
     Active Substance: HUMAN IMMUNOGLOBULIN G
     Indication: Immunodeficiency common variable
     Dosage: 45 GRAM, Q3WEEKS
     Dates: start: 20190923
  2. HUMAN IMMUNOGLOBULIN G [Suspect]
     Active Substance: HUMAN IMMUNOGLOBULIN G
     Dosage: 45 GRAM, Q3WEEKS
     Dates: start: 20190924
  3. HUMAN IMMUNOGLOBULIN G [Suspect]
     Active Substance: HUMAN IMMUNOGLOBULIN G
     Dosage: 45 GRAM, Q3WEEKS
     Dates: start: 20191007
  4. HUMAN IMMUNOGLOBULIN G [Suspect]
     Active Substance: HUMAN IMMUNOGLOBULIN G
     Dosage: 45 GRAM, Q3WEEKS
     Dates: start: 20191113
  5. HUMAN IMMUNOGLOBULIN G [Suspect]
     Active Substance: HUMAN IMMUNOGLOBULIN G
     Dosage: 45 GRAM, Q3WEEKS
     Dates: start: 20191028
  6. HUMAN IMMUNOGLOBULIN G [Suspect]
     Active Substance: HUMAN IMMUNOGLOBULIN G
     Dosage: 45 GRAM, Q3WEEKS
  7. HUMAN IMMUNOGLOBULIN G [Suspect]
     Active Substance: HUMAN IMMUNOGLOBULIN G
     Dosage: 45 GRAM, Q3WEEKS
  8. DOXYCYCLINE [Suspect]
     Active Substance: DOXYCYCLINE
     Indication: Product used for unknown indication
  9. OXYCODONE [Suspect]
     Active Substance: OXYCODONE
     Indication: Product used for unknown indication
  10. ZOLOFT [Concomitant]
     Active Substance: SERTRALINE HYDROCHLORIDE
  11. DIPHENHYDRAMINE [Concomitant]
     Active Substance: DIPHENHYDRAMINE
  12. ADVIL [Concomitant]
     Active Substance: IBUPROFEN
  13. PROPRANOLOL HYDROCHLORIDE [Concomitant]
     Active Substance: PROPRANOLOL HYDROCHLORIDE
  14. SODIUM CHLORIDE [Concomitant]
     Active Substance: SODIUM CHLORIDE
  15. EPINEPHRINE [Concomitant]
     Active Substance: EPINEPHRINE
  16. RESTASIS [Concomitant]
     Active Substance: CYCLOSPORINE
  17. MAGNESIUM [Concomitant]
     Active Substance: MAGNESIUM
  18. ACETAMINOPHEN [Concomitant]
     Active Substance: ACETAMINOPHEN
  19. IRON [Concomitant]
     Active Substance: IRON
  20. FLAXSEED [Concomitant]
     Active Substance: FLAX SEED
  21. MUPIROCIN [Concomitant]
     Active Substance: MUPIROCIN
  22. CLINDAMYCIN HYDROCHLORIDE [Concomitant]
     Active Substance: CLINDAMYCIN HYDROCHLORIDE
  23. MOMETASONE [Concomitant]
     Active Substance: MOMETASONE
  24. SYSTANE BALANCE [Concomitant]
     Active Substance: PROPYLENE GLYCOL
  25. FLAXSEED [Concomitant]
     Active Substance: FLAX SEED
  26. ACETAMINOPHEN\HYDROCODONE [Concomitant]
     Active Substance: ACETAMINOPHEN\HYDROCODONE
  27. Lmx [Concomitant]
  28. XANAX [Concomitant]
     Active Substance: ALPRAZOLAM
  29. TRAMADOL [Concomitant]
     Active Substance: TRAMADOL
  30. FLONASE [Concomitant]
     Active Substance: FLUTICASONE PROPIONATE
  31. WELLBUTRIN [Concomitant]
     Active Substance: BUPROPION HYDROCHLORIDE
  32. POLYETHYLENE GLYCOL [Concomitant]
     Active Substance: POLYETHYLENE GLYCOL
  33. LORATADINE D [Concomitant]
     Active Substance: LORATADINE\PSEUDOEPHEDRINE SULFATE
  34. VITAMIN C [Concomitant]
     Active Substance: ASCORBIC ACID
  35. NAPROXEN [Concomitant]
     Active Substance: NAPROXEN
  36. DOXYCYCLINE [Concomitant]
     Active Substance: DOXYCYCLINE
  37. NORCO [Concomitant]
     Active Substance: ACETAMINOPHEN\HYDROCODONE BITARTRATE
  38. VITAMIN D2 [Concomitant]
     Active Substance: ERGOCALCIFEROL
  39. VITAMIN D [Concomitant]
     Active Substance: VITAMIN D NOS
  40. MELOXICAM [Concomitant]
     Active Substance: MELOXICAM
  41. ADDERALL [Concomitant]
     Active Substance: AMPHETAMINE ASPARTATE\AMPHETAMINE SULFATE\DEXTROAMPHETAMINE SACCHARATE\DEXTROAMPHETAMINE SULFATE
  42. DEXTROAMPHETAMINE [Concomitant]
     Active Substance: DEXTROAMPHETAMINE
  43. PATADAY [Concomitant]
     Active Substance: OLOPATADINE HYDROCHLORIDE
  44. AMPHETAMINE [Concomitant]
     Active Substance: AMPHETAMINE
  45. RIBOFLAVIN [Concomitant]
     Active Substance: RIBOFLAVIN
  46. ESTRADIOL [Concomitant]
     Active Substance: ESTRADIOL
  47. PROGESTERONE [Concomitant]
     Active Substance: PROGESTERONE
  48. DOCUSATE SODIUM [Concomitant]
     Active Substance: DOCUSATE SODIUM
  49. PROTONIX [Concomitant]
     Active Substance: PANTOPRAZOLE SODIUM
  50. JORNAY PM EXTENDED-RELEASE [Concomitant]
     Active Substance: METHYLPHENIDATE HYDROCHLORIDE
  51. PROBIOTICS NOS [Concomitant]
     Active Substance: PROBIOTICS NOS
  52. DESVENLAFAXINE [Concomitant]
     Active Substance: DESVENLAFAXINE
  53. ASPIRIN [Concomitant]
     Active Substance: ASPIRIN
  54. ONDANSETRON [Concomitant]
     Active Substance: ONDANSETRON
  55. PRISTIQ EXTENDED-RELEASE [Concomitant]
     Active Substance: DESVENLAFAXINE SUCCINATE
  56. DIPHENHYDRAMINE HYDROCHLORIDE [Concomitant]
     Active Substance: DIPHENHYDRAMINE HYDROCHLORIDE
  57. ONDANSETRON HYDROCHLORIDE [Concomitant]
     Active Substance: ONDANSETRON HYDROCHLORIDE

REACTIONS (23)
  - Staphylococcal infection [Unknown]
  - COVID-19 [Unknown]
  - Fungal rhinitis [Unknown]
  - Chronic sinusitis [Unknown]
  - Infection [Unknown]
  - Throat irritation [Unknown]
  - Plantar fasciitis [Unknown]
  - Osteoarthritis [Unknown]
  - Drug intolerance [Unknown]
  - Drug hypersensitivity [Unknown]
  - Weight increased [Unknown]
  - Tinea pedis [Unknown]
  - Attention deficit hyperactivity disorder [Unknown]
  - Fall [Unknown]
  - Sinusitis [Unknown]
  - Hypotension [Unknown]
  - Pruritus [Unknown]
  - Cough [Unknown]
  - Erythema [Unknown]
  - Arthralgia [Unknown]
  - Headache [Unknown]
  - Nausea [Unknown]
  - Dizziness [Unknown]
